FAERS Safety Report 7404985-0 (Version None)
Quarter: 2011Q1

REPORT INFORMATION
  Report Type: 
  Country: None (occurrence: None)
  Receive Date: 20110330
  Receipt Date: 20110316
  Transmission Date: 20110831
  Serious: Yes (Death)
  Sender: FDA-Public Use
  Company Number: 861009

PATIENT
  Age: 53 Year
  Sex: Male
  Weight: 90.91 kg

DRUGS (2)
  1. EPINEPHRINE [Suspect]
     Indication: CARDIAC ARREST
     Dosage: 1 MG, X 6, INTRAVENOUS (NOT OTHERWISE SPECIFIED)
     Route: 042
     Dates: start: 20110315, end: 20110315
  2. ATROPINE SULFATE [Concomitant]

REACTIONS (3)
  - SYRINGE ISSUE [None]
  - DEVICE MALFUNCTION [None]
  - PRODUCT QUALITY ISSUE [None]
